FAERS Safety Report 17233773 (Version 1)
Quarter: 2020Q1

REPORT INFORMATION
  Report Type: Other
  Country: FR (occurrence: FR)
  Receive Date: 20200106
  Receipt Date: 20200106
  Transmission Date: 20200409
  Serious: Yes (Life-Threatening)
  Sender: FDA-Public Use
  Company Number: FR-CELLTRION INC.-2019FR027812

PATIENT

DRUGS (12)
  1. TRUXIMA [Suspect]
     Active Substance: RITUXIMAB-ABBS
     Indication: DIFFUSE LARGE B-CELL LYMPHOMA
     Dosage: 375 MG/M2
     Route: 041
  2. GEMCITABINE SANDOZ [Suspect]
     Active Substance: GEMCITABINE\GEMCITABINE HYDROCHLORIDE
     Indication: DIFFUSE LARGE B-CELL LYMPHOMA
     Dosage: UNK
     Route: 041
  3. OXALIPLATINE ACCORD [Suspect]
     Active Substance: OXALIPLATIN
     Indication: DIFFUSE LARGE B-CELL LYMPHOMA
     Dosage: 100 MG/M2
     Route: 041
  4. DESLORATADINE. [Concomitant]
     Active Substance: DESLORATADINE
  5. BISOPROLOL [Concomitant]
     Active Substance: BISOPROLOL
  6. SPIRONOLACTONE. [Concomitant]
     Active Substance: SPIRONOLACTONE
  7. TRANXENE [Concomitant]
     Active Substance: CLORAZEPATE DIPOTASSIUM
  8. BACTRIM [Concomitant]
     Active Substance: SULFAMETHOXAZOLE\TRIMETHOPRIM
  9. SIMVASTATINE [Concomitant]
     Active Substance: SIMVASTATIN
  10. DAFALGAN [Concomitant]
     Active Substance: ACETAMINOPHEN
  11. VALACICLOVIR [Concomitant]
     Active Substance: VALACYCLOVIR HYDROCHLORIDE
  12. CORTANCYL [Concomitant]
     Active Substance: PREDNISONE
     Dosage: UNK

REACTIONS (1)
  - Capillary leak syndrome [Recovering/Resolving]

NARRATIVE: CASE EVENT DATE: 20191003
